FAERS Safety Report 5839662-0 (Version None)
Quarter: 2008Q3

REPORT INFORMATION
  Report Type: 
  Country: None (occurrence: None)
  Receive Date: 20080811
  Receipt Date: 20080731
  Transmission Date: 20090109
  Serious: Yes (Other)
  Sender: FDA-Public Use
  Company Number: IT-JNJFOC-20080800484

PATIENT
  Age: 23 Year
  Sex: Male

DRUGS (3)
  1. REMICADE [Suspect]
     Route: 042
  2. REMICADE [Suspect]
     Indication: PSORIASIS
     Route: 042
  3. TACHIPIRINA [Concomitant]
     Indication: PREMEDICATION
     Route: 048

REACTIONS (3)
  - INFUSION RELATED REACTION [None]
  - LARYNGEAL DYSPNOEA [None]
  - LARYNGEAL STENOSIS [None]
